FAERS Safety Report 4978402-4 (Version None)
Quarter: 2006Q2

REPORT INFORMATION
  Report Type: 
  Country: None (occurrence: None)
  Receive Date: 20060417
  Receipt Date: 20060405
  Transmission Date: 20061013
  Serious: Yes (Life-Threatening, Hospitalization)
  Sender: FDA-Public Use
  Company Number: 8016169

PATIENT
  Age: 65 Year
  Sex: Female
  Weight: 70 kg

DRUGS (5)
  1. KEPPRA [Suspect]
     Indication: EPILEPSY
     Dosage: 1000 MG /D PO
     Route: 048
     Dates: start: 20060113, end: 20060123
  2. TRILEPTAL [Suspect]
     Indication: EPILEPSY
     Dosage: 1050 MG /D PO
     Route: 048
     Dates: start: 20050101
  3. ESIDRIX [Suspect]
     Indication: CARDIAC FAILURE
     Dosage: 12.5 MG /D PO
     Route: 048
  4. MARCUMAR [Concomitant]
  5. NOVODIGAL /00017701/ [Concomitant]

REACTIONS (1)
  - HYPONATRAEMIA [None]
